FAERS Safety Report 7718696-5 (Version None)
Quarter: 2011Q3

REPORT INFORMATION
  Report Type: 
  Country: None (occurrence: None)
  Receive Date: 20110830
  Receipt Date: 20110818
  Transmission Date: 20111222
  Serious: Yes (Other)
  Sender: FDA-Public Use
  Company Number: GB-ELI_LILLY_AND_COMPANY-GB201108005580

PATIENT
  Age: 47 Year
  Sex: Male

DRUGS (5)
  1. FLUOXETINE [Suspect]
     Dosage: 40 MG, QD
  2. CLOZAPINE [Concomitant]
     Indication: SCHIZOPHRENIA
     Dosage: 450 MG, QD
     Dates: start: 20090728
  3. CLOZAPINE [Concomitant]
     Dosage: 300 MG, BID
  4. CLOZAPINE [Concomitant]
     Dosage: 550 MG, QD
  5. CLOZAPINE [Concomitant]
     Dosage: 500 MG, QD
     Route: 048

REACTIONS (9)
  - ABDOMINAL PAIN [None]
  - LETHARGY [None]
  - DRUG INTERACTION [None]
  - COUGH [None]
  - WEIGHT DECREASED [None]
  - DIARRHOEA [None]
  - HYPERHIDROSIS [None]
  - DECREASED APPETITE [None]
  - BLOOD ALKALINE PHOSPHATASE INCREASED [None]
